FAERS Safety Report 8047181-9 (Version None)
Quarter: 2012Q1

REPORT INFORMATION
  Report Type: 
  Country: None (occurrence: None)
  Receive Date: 20120116
  Receipt Date: 20120108
  Transmission Date: 20120608
  Serious: Yes (Hospitalization, Other)
  Sender: FDA-Public Use
  Company Number: PHHY2012US001677

PATIENT
  Age: 11 Year
  Sex: Female

DRUGS (1)
  1. CEFTRIAXONE [Suspect]
     Indication: LYME DISEASE

REACTIONS (19)
  - KIDNEY ENLARGEMENT [None]
  - PYREXIA [None]
  - NORMOCHROMIC NORMOCYTIC ANAEMIA [None]
  - ARTHRALGIA [None]
  - BLOOD LACTATE DEHYDROGENASE INCREASED [None]
  - DECREASED APPETITE [None]
  - DEHYDRATION [None]
  - HAPTOGLOBIN DECREASED [None]
  - TACHYCARDIA [None]
  - FIBRIN D DIMER INCREASED [None]
  - PROTEINURIA [None]
  - VOMITING [None]
  - ABDOMINAL TENDERNESS [None]
  - HAEMOLYTIC ANAEMIA [None]
  - INTRAVASCULAR HAEMOLYSIS [None]
  - DIARRHOEA [None]
  - RENAL TUBULAR NECROSIS [None]
  - ABDOMINAL PAIN [None]
  - JOINT EFFUSION [None]
